FAERS Safety Report 4848683-6 (Version None)
Quarter: 2005Q4

REPORT INFORMATION
  Report Type: 
  Country: None (occurrence: None)
  Receive Date: 20051206
  Receipt Date: 20051118
  Transmission Date: 20060501
  Serious: Yes (Death)
  Sender: FDA-Public Use
  Company Number: GR200511002283

PATIENT
  Age: 58 Year
  Sex: Male

DRUGS (1)
  1. ZYPREXA [Suspect]
     Indication: PSYCHOMOTOR HYPERACTIVITY
     Dosage: 5 MG, 3/D, ORAL
     Route: 048
     Dates: start: 20051116, end: 20051116

REACTIONS (2)
  - ABDOMINAL PAIN [None]
  - MYOCARDIAL INFARCTION [None]
